FAERS Safety Report 19835136 (Version 1)
Quarter: 2021Q3

REPORT INFORMATION
  Report Type: Report from Study
  Country: US (occurrence: US)
  Receive Date: 20210914
  Receipt Date: 20210914
  Transmission Date: 20211014
  Serious: Yes (Other)
  Sender: FDA-Public Use
  Company Number: US-BAYER-2021-210457

PATIENT
  Age: 20 Year
  Sex: Male

DRUGS (4)
  1. SORAFENIB [Suspect]
     Active Substance: SORAFENIB
     Indication: ACUTE MYELOID LEUKAEMIA
     Dosage: UNK
  2. AZACITIDINE. [Concomitant]
     Active Substance: AZACITIDINE
  3. VENETOCLAX. [Concomitant]
     Active Substance: VENETOCLAX
  4. MITOXANTRONE [Suspect]
     Active Substance: MITOXANTRONE HYDROCHLORIDE
     Dosage: UNK

REACTIONS (3)
  - Off label use [None]
  - Critical illness [Recovering/Resolving]
  - Intestinal perforation [None]
